FAERS Safety Report 18158020 (Version 1)
Quarter: 2020Q3

REPORT INFORMATION
  Report Type: Spontaneous
  Country: US (occurrence: US)
  Receive Date: 20200817
  Receipt Date: 20200817
  Transmission Date: 20201103
  Serious: No
  Sender: FDA-Public Use
  Company Number: US-MEDEXUS PHARMA, INC.-2020MED00012

PATIENT
  Age: 50 Year
  Sex: Female
  Weight: 88.07 kg

DRUGS (22)
  1. RASUVO [Suspect]
     Active Substance: METHOTREXATE SODIUM
     Indication: PULMONARY SARCOIDOSIS
     Dosage: 15 MG, 1X/WEEK ON WEDNESDAYS INJECTED INTO EITHER THE BELLY OR TOP OF THE THIGH
     Dates: start: 20191204
  2. METHOTREXATE. [Suspect]
     Active Substance: METHOTREXATE
     Dosage: 15 MG, 1X/WEEK ^CRUSHING UP SIX 2.5 MG PILLS AND MIXING WITH 0.5 CRUSHED FOLIC ACID 4 MG TABLET^
     Route: 048
     Dates: start: 2019, end: 202001
  3. ZOFRAN [Concomitant]
     Active Substance: ONDANSETRON HYDROCHLORIDE
     Dosage: 8 MG (10 ML DOSE)
     Dates: start: 2019
  4. VOLTAREN [Concomitant]
     Active Substance: DICLOFENAC SODIUM
     Dosage: UNK, AS NEEDED
  5. OMEPRAZOLE DR [Concomitant]
     Active Substance: OMEPRAZOLE
     Dosage: 20 MG, 2X/DAY ^CAPSULES ARE OPENED AND SPRINKLED ONTO FOOD^
     Dates: start: 20191121
  6. ADVAIR DISKUS [Concomitant]
     Active Substance: FLUTICASONE PROPIONATE\SALMETEROL XINAFOATE
     Dosage: 1 DOSAGE UNITS, 2X/DAY
  7. TRIAMCINOLONE ACETONIDE. [Concomitant]
     Active Substance: TRIAMCINOLONE ACETONIDE
  8. PATADAY [Concomitant]
     Active Substance: OLOPATADINE HYDROCHLORIDE
     Dosage: UNK, AS NEEDED
  9. LIQUID OXYCODONE [Concomitant]
     Active Substance: OXYCODONE
     Dosage: UNK
  10. KETOCONAZOLE. [Concomitant]
     Active Substance: KETOCONAZOLE
  11. BISAC/EVAC [Concomitant]
     Dosage: 10 MG, 1X/DAY
     Dates: start: 20200116
  12. ALBUTEROL. [Concomitant]
     Active Substance: ALBUTEROL
     Dosage: UNK, AS NEEDED
  13. BENZONATATE. [Concomitant]
     Active Substance: BENZONATATE
  14. CHILDRENS TYLENOL [Concomitant]
     Active Substance: ACETAMINOPHEN
     Dosage: UNK, AS NEEDED
  15. SUDAFED [Concomitant]
     Active Substance: PSEUDOEPHEDRINE HYDROCHLORIDE
     Dosage: UNK, AS NEEDED
  16. ZYRTEC?D [Concomitant]
     Active Substance: CETIRIZINE HYDROCHLORIDE\PSEUDOEPHEDRINE HYDROCHLORIDE
     Dosage: 10 MG, 2X/DAY
  17. LIQUID OXYCODONE [Concomitant]
     Active Substance: OXYCODONE
     Dosage: UNK
     Dates: start: 20191120, end: 20191124
  18. RASUVO [Suspect]
     Active Substance: METHOTREXATE SODIUM
     Indication: INTERSTITIAL LUNG DISEASE
     Dosage: 15 MG, 1X/WEEK ON WEDNESDAYS INJECTED INTO EITHER THE BELLY OR TOP OF THE THIGH
     Dates: start: 20200108
  19. ZOFRAN [Concomitant]
     Active Substance: ONDANSETRON HYDROCHLORIDE
     Dosage: 4 MG (5 ML DOSE)
     Dates: start: 20191120, end: 2019
  20. DULCOLAX NOS [Concomitant]
     Active Substance: BISACODYL OR DOCUSATE SODIUM
  21. FOLIC ACID. [Concomitant]
     Active Substance: FOLIC ACID
  22. PREDNISONE. [Concomitant]
     Active Substance: PREDNISONE
     Dosage: UNK, AS NEEDED

REACTIONS (7)
  - Product dose omission issue [Recovered/Resolved]
  - Product use in unapproved indication [Not Recovered/Not Resolved]
  - Abdominal pain upper [Not Recovered/Not Resolved]
  - Diarrhoea [Recovering/Resolving]
  - Nausea [Recovering/Resolving]
  - Vomiting [Recovering/Resolving]
  - Device failure [Recovered/Resolved]

NARRATIVE: CASE EVENT DATE: 2019
